FAERS Safety Report 15940733 (Version 1)
Quarter: 2019Q1

REPORT INFORMATION
  Report Type: Spontaneous
  Country: US (occurrence: US)
  Receive Date: 20190208
  Receipt Date: 20190208
  Transmission Date: 20190417
  Serious: No
  Sender: FDA-Public Use
  Company Number: US-PFIZER INC-2019045763

PATIENT
  Age: 61 Year
  Sex: Male
  Weight: 112 kg

DRUGS (1)
  1. GABAPENTIN. [Suspect]
     Active Substance: GABAPENTIN
     Dosage: UNK
     Dates: start: 20170404

REACTIONS (5)
  - Tremor [Unknown]
  - Fall [Unknown]
  - Agitation [Unknown]
  - Muscle twitching [Unknown]
  - Irritability [Unknown]
